FAERS Safety Report 24781353 (Version 1)
Quarter: 2024Q4

REPORT INFORMATION
  Report Type: Spontaneous
  Country: US (occurrence: US)
  Receive Date: 20241227
  Receipt Date: 20241227
  Transmission Date: 20250115
  Serious: No
  Sender: PADAGIS
  Company Number: US-PADAGIS-2024PAD01955

PATIENT

DRUGS (2)
  1. TRETINOIN [Suspect]
     Active Substance: TRETINOIN
     Indication: Acne
     Dosage: UNK
     Route: 065
  2. TRETINOIN [Suspect]
     Active Substance: TRETINOIN
     Dosage: UNK (PERRIGO)
     Route: 065

REACTIONS (3)
  - Dry skin [Unknown]
  - Skin irritation [Unknown]
  - Erythema [Unknown]
